FAERS Safety Report 20485119 (Version 1)
Quarter: 2022Q1

REPORT INFORMATION
  Report Type: Spontaneous
  Country: US (occurrence: US)
  Receive Date: 20220217
  Receipt Date: 20220217
  Transmission Date: 20220424
  Serious: No
  Sender: FDA-Public Use
  Company Number: US-PFIZER INC-2021545883

PATIENT
  Age: 15 Year
  Sex: Female

DRUGS (1)
  1. SOMATROPIN [Suspect]
     Active Substance: SOMATROPIN
     Dosage: UNK UNK, DAILY [1.4MG WITH 2.0MG DAILY]

REACTIONS (3)
  - Product dose omission issue [Unknown]
  - Exposure to SARS-CoV-2 [Unknown]
  - Growth disorder [Unknown]
